FAERS Safety Report 12408918 (Version 4)
Quarter: 2017Q1

REPORT INFORMATION
  Report Type: Report from Study
  Country: US (occurrence: US)
  Receive Date: 20160526
  Receipt Date: 20170201
  Transmission Date: 20170428
  Serious: Yes (Hospitalization, Other)
  Sender: FDA-Public Use
  Company Number: US-AMGEN-USASL2016066526

PATIENT
  Age: 58 Year
  Sex: Female

DRUGS (2)
  1. ENBREL [Suspect]
     Active Substance: ETANERCEPT
     Indication: PSORIATIC ARTHROPATHY
     Dosage: 50 MG, UNK
     Route: 065
     Dates: end: 2016
  2. ENBREL [Suspect]
     Active Substance: ETANERCEPT
     Dosage: 50 MG, UNK
     Route: 065

REACTIONS (10)
  - Hypoxia [Unknown]
  - Liver abscess [Unknown]
  - Traumatic lung injury [Unknown]
  - Pleural effusion [Not Recovered/Not Resolved]
  - Procedural complication [Unknown]
  - Traumatic liver injury [Unknown]
  - Pulmonary mass [Unknown]
  - Interstitial lung disease [Unknown]
  - Psoriatic arthropathy [Not Recovered/Not Resolved]
  - Pain [Unknown]

NARRATIVE: CASE EVENT DATE: 2016
